FAERS Safety Report 7689999-8 (Version None)
Quarter: 2011Q3

REPORT INFORMATION
  Report Type: 
  Country: None (occurrence: None)
  Receive Date: 20110818
  Receipt Date: 20110811
  Transmission Date: 20111222
  Serious: No
  Sender: FDA-Public Use
  Company Number: US-BIOGENIDEC-2011BI030931

PATIENT
  Sex: Female

DRUGS (1)
  1. TYSABRI [Suspect]
     Indication: MULTIPLE SCLEROSIS
     Route: 042
     Dates: start: 20090824, end: 20100805

REACTIONS (4)
  - OPTIC NEURITIS [None]
  - ARTHRITIS [None]
  - OSTEOPOROSIS [None]
  - STAPHYLOCOCCAL INFECTION [None]
